FAERS Safety Report 5819648-2 (Version None)
Quarter: 2008Q3

REPORT INFORMATION
  Report Type: 
  Country: None (occurrence: None)
  Receive Date: 20080723
  Receipt Date: 20080716
  Transmission Date: 20090109
  Serious: Yes (Hospitalization)
  Sender: FDA-Public Use
  Company Number: US-BOEHRINGER INGELHEIM GMBH, GERMANY-2008-DE-04121GD

PATIENT
  Sex: Female

DRUGS (2)
  1. CLONIDINE [Suspect]
     Indication: RENOVASCULAR HYPERTENSION
  2. ACTIVASE [Suspect]
     Indication: THROMBOSIS IN DEVICE

REACTIONS (4)
  - DRUG INEFFECTIVE [None]
  - HYPERTENSION [None]
  - RENAL FAILURE [None]
  - THROMBOSIS IN DEVICE [None]
